FAERS Safety Report 8443942-2 (Version None)
Quarter: 2012Q2

REPORT INFORMATION
  Report Type: 
  Country: None (occurrence: None)
  Receive Date: 20120323
  Receipt Date: 20110616
  Transmission Date: 20120825
  Serious: Yes (Hospitalization)
  Sender: FDA-Public Use
  Company Number: 163-21880-11062248

PATIENT
  Age: 69 Year
  Sex: Female
  Weight: 53.5244 kg

DRUGS (10)
  1. CALCIUM (CALCIUM) (UNKNOWN) [Concomitant]
  2. COREG (CARVEDILOL) (UNKNOWN) [Concomitant]
  3. PRILOSEC (OMEPRAZOLE) (UNKNOWN) [Concomitant]
  4. VITAMIN D (ERGOCALCIFEROL) (UNKNOWN) [Concomitant]
  5. REVLIMID [Suspect]
     Indication: MULTIPLE MYELOMA
     Dosage: 7.5 MG, 1 IN 2 D, PO 5 MG, DAILY X 28 DAYS, PO
     Route: 048
     Dates: start: 20110201
  6. REVLIMID [Suspect]
     Indication: MULTIPLE MYELOMA
     Dosage: 7.5 MG, 1 IN 2 D, PO 5 MG, DAILY X 28 DAYS, PO
     Route: 048
     Dates: start: 20110111, end: 20110125
  7. ALPRAZOLAM [Concomitant]
  8. ASPIRIN [Concomitant]
  9. LIPITOR [Concomitant]
  10. LISINOPRIL [Concomitant]

REACTIONS (2)
  - RENAL FAILURE [None]
  - CARDIAC FAILURE CONGESTIVE [None]
